FAERS Safety Report 9429199 (Version 1)
Quarter: 2013Q3

REPORT INFORMATION
  Report Type: Spontaneous
  Country: IT (occurrence: IT)
  Receive Date: 20130730
  Receipt Date: 20130730
  Transmission Date: 20140515
  Serious: Yes (Other)
  Sender: FDA-Public Use
  Company Number: IT-TEVA-421035ISR

PATIENT
  Age: 75 Year
  Sex: Female
  Weight: 65 kg

DRUGS (2)
  1. CARBOPLATINO TEVA [Suspect]
     Indication: ENDOMETRIAL ADENOCARCINOMA
     Dosage: 450 MILLIGRAM DAILY; 450 MG CYCLICAL
     Route: 041
     Dates: start: 20130612, end: 20130703
  2. PACLITAXEL [Concomitant]
     Indication: ENDOMETRIAL ADENOCARCINOMA
     Dosage: 260 MILLIGRAM DAILY;
     Route: 042
     Dates: start: 20130612, end: 20130703

REACTIONS (5)
  - Macroglossia [Recovered/Resolved]
  - Abdominal pain upper [Recovered/Resolved]
  - Malaise [Recovered/Resolved]
  - Formication [Recovered/Resolved]
  - Pruritus [Recovered/Resolved]
